FAERS Safety Report 7647793-8 (Version None)
Quarter: 2011Q3

REPORT INFORMATION
  Report Type: 
  Country: None (occurrence: None)
  Receive Date: 20110801
  Receipt Date: 20110727
  Transmission Date: 20111222
  Serious: Yes (Hospitalization, Other)
  Sender: FDA-Public Use
  Company Number: FR-BRISTOL-MYERS SQUIBB COMPANY-15932130

PATIENT
  Age: 75 Year
  Sex: Female

DRUGS (7)
  1. SINTROM [Concomitant]
     Route: 048
  2. AMIODARONE HCL [Concomitant]
     Dosage: 6 DAYS OVER 7
  3. IRBESARTAN + HYDROCHLOROTHIAZIDE [Suspect]
     Indication: HYPERTENSION
     Route: 048
     Dates: end: 20101214
  4. ALDACTAZIDE [Interacting]
     Indication: HYPERTENSION
     Route: 048
     Dates: start: 20101130, end: 20101214
  5. BISOPROLOL FUMARATE [Concomitant]
     Route: 048
  6. LEVOTHYROXINE SODIUM [Concomitant]
  7. PRAVASTATIN SODIUM [Concomitant]

REACTIONS (3)
  - HYPERKALAEMIA [None]
  - DRUG INTERACTION [None]
  - RENAL FAILURE ACUTE [None]
